FAERS Safety Report 5492796-5 (Version None)
Quarter: 2007Q4

REPORT INFORMATION
  Report Type: 
  Country: None (occurrence: None)
  Receive Date: 20071019
  Receipt Date: 20070124
  Transmission Date: 20080405
  Serious: Yes (Life-Threatening, Other)
  Sender: FDA-Public Use
  Company Number: 2007SP000488

PATIENT
  Age: 42 Year
  Sex: Female
  Weight: 66 kg

DRUGS (11)
  1. TEMODAL [Suspect]
     Indication: ANAPLASTIC ASTROCYTOMA
     Dosage: 150 MG/M2;QD;PO
     Route: 048
     Dates: start: 20061228, end: 20070101
  2. TEMODAL [Suspect]
     Indication: NEOPLASM RECURRENCE
     Dosage: 150 MG/M2;QD;PO
     Route: 048
     Dates: start: 20061228, end: 20070101
  3. NIDRAN [Concomitant]
  4. RADIOTHERAPY [Concomitant]
  5. PHENYTOIN SODIUM CAP [Concomitant]
  6. BISOLVON [Concomitant]
  7. SUCRALFATE [Concomitant]
  8. THYRADIN S [Concomitant]
  9. ZANTAC [Concomitant]
  10. PREDONINE [Concomitant]
  11. KYTRIL [Concomitant]

REACTIONS (3)
  - DEPRESSED LEVEL OF CONSCIOUSNESS [None]
  - HEPATIC FUNCTION ABNORMAL [None]
  - INTRACRANIAL TUMOUR HAEMORRHAGE [None]
